FAERS Safety Report 24889818 (Version 5)
Quarter: 2025Q4

REPORT INFORMATION
  Report Type: Spontaneous
  Country: US (occurrence: US)
  Receive Date: 20250127
  Receipt Date: 20251223
  Transmission Date: 20260119
  Serious: Yes (Hospitalization)
  Sender: BAYER HEALTHCARE PHARMACEUTICALS INC.
  Company Number: US-BAYER-2025A009940

PATIENT
  Age: 48 Year
  Sex: Female
  Weight: 121.09 kg

DRUGS (12)
  1. MIRENA [Suspect]
     Active Substance: LEVONORGESTREL
     Indication: Intrauterine contraception
     Dosage: 20?G/DAY
     Route: 015
     Dates: start: 201903
  2. ELELYSO [Suspect]
     Active Substance: TALIGLUCERASE ALFA
     Route: 042
  3. DIPHENHYDRAMINE [Concomitant]
     Active Substance: DIPHENHYDRAMINE
  4. LIDOCAINE\PRILOCAINE [Concomitant]
     Active Substance: LIDOCAINE\PRILOCAINE
  5. ACETAMINOPHEN [Concomitant]
     Active Substance: ACETAMINOPHEN
  6. EPINEPHRINE [Concomitant]
     Active Substance: EPINEPHRINE
  7. BACLOFEN [Concomitant]
     Active Substance: BACLOFEN
  8. HEPARIN LOCK FLUSH [Concomitant]
     Active Substance: HEPARIN SODIUM
  9. CELEBREX [Concomitant]
     Active Substance: CELECOXIB
  10. BENADRYL [Concomitant]
     Active Substance: DIPHENHYDRAMINE HYDROCHLORIDE
  11. SODIUM CHLORIDE [Concomitant]
     Active Substance: SODIUM CHLORIDE
     Dosage: 10 ML
  12. STERILE WATER [Concomitant]
     Active Substance: WATER
     Dosage: 100 ML

REACTIONS (7)
  - Hysterectomy [None]
  - Muscle spasms [Not Recovered/Not Resolved]
  - Hypotension [Recovering/Resolving]
  - Oropharyngeal discomfort [None]
  - Cough [None]
  - Weight fluctuation [Recovering/Resolving]
  - Infusion related reaction [None]

NARRATIVE: CASE EVENT DATE: 20251208
